FAERS Safety Report 7865119-1 (Version None)
Quarter: 2011Q4

REPORT INFORMATION
  Report Type: 
  Country: None (occurrence: None)
  Receive Date: 20111028
  Receipt Date: 20101018
  Transmission Date: 20120403
  Serious: No
  Sender: FDA-Public Use
  Company Number: US-GLAXOSMITHKLINE-A0887395A

PATIENT
  Sex: Female

DRUGS (8)
  1. LEVOXYL [Concomitant]
  2. HORMONES [Concomitant]
     Route: 048
  3. ASCORBIC ACID [Concomitant]
  4. COREG [Concomitant]
  5. LANTUS [Concomitant]
  6. AVAPRO [Concomitant]
  7. ADVAIR DISKUS 100/50 [Suspect]
     Indication: ASTHMA
     Dosage: 1PUFF TWICE PER DAY
     Route: 055
     Dates: start: 20080101
  8. PRANDIN [Concomitant]

REACTIONS (2)
  - DRUG INEFFECTIVE [None]
  - PRODUCT QUALITY ISSUE [None]
